FAERS Safety Report 10368280 (Version 1)
Quarter: 2014Q3

REPORT INFORMATION
  Report Type: Spontaneous
  Country: US (occurrence: US)
  Receive Date: 20140807
  Receipt Date: 20140807
  Transmission Date: 20150326
  Serious: Yes (Other)
  Sender: FDA-Public Use
  Company Number: US-TEVA-499930USA

PATIENT
  Age: 30 Year
  Sex: Female
  Weight: 65.83 kg

DRUGS (6)
  1. COLACE [Concomitant]
     Active Substance: DOCUSATE SODIUM
     Indication: PROPHYLAXIS
  2. MULTIVITAMINS [Concomitant]
     Active Substance: VITAMINS
     Indication: BREAST FEEDING
  3. CALCIUM [Concomitant]
     Active Substance: CALCIUM
     Indication: BREAST FEEDING
  4. IRON [Concomitant]
     Active Substance: IRON
     Indication: BREAST FEEDING
  5. PARAGARD T380A [Suspect]
     Active Substance: COPPER
     Indication: CONTRACEPTION
     Route: 063
     Dates: start: 20140716, end: 20140731
  6. PRENATAL VITAMINS [Concomitant]
     Active Substance: VITAMINS
     Indication: BREAST FEEDING

REACTIONS (3)
  - Exposure during breast feeding [Unknown]
  - Device dislocation [Recovered/Resolved]
  - Abdominal pain [Unknown]

NARRATIVE: CASE EVENT DATE: 20140728
